FAERS Safety Report 6464455-3 (Version None)
Quarter: 2009Q4

REPORT INFORMATION
  Report Type: 
  Country: None (occurrence: None)
  Receive Date: 20091201
  Receipt Date: 20091123
  Transmission Date: 20100525
  Serious: Yes (Other)
  Sender: FDA-Public Use
  Company Number: GB-BAYER-200714173GDS

PATIENT
  Age: 38 Year
  Sex: Male

DRUGS (3)
  1. ASPIRIN [Suspect]
     Indication: BACK PAIN
     Dosage: AS USED: 600 MG
     Route: 048
     Dates: start: 20040701, end: 20040701
  2. DICLOFENAC [Suspect]
     Indication: DRUG USE FOR UNKNOWN INDICATION
  3. SODIUM CHROMATE [Concomitant]
     Indication: DRUG USE FOR UNKNOWN INDICATION
     Route: 065

REACTIONS (6)
  - ABNORMAL SENSATION IN EYE [None]
  - ANGIOEDEMA [None]
  - CONJUNCTIVAL OEDEMA [None]
  - EYE PAIN [None]
  - LACRIMATION INCREASED [None]
  - VISION BLURRED [None]
